FAERS Safety Report 6618144-2 (Version None)
Quarter: 2010Q1

REPORT INFORMATION
  Report Type: 
  Country: None (occurrence: None)
  Receive Date: 20100308
  Receipt Date: 20100224
  Transmission Date: 20100710
  Serious: Yes (Other)
  Sender: FDA-Public Use
  Company Number: JP-PFIZER INC-2010020720

PATIENT
  Sex: Male

DRUGS (3)
  1. HALCION [Suspect]
     Dosage: 12 TABLETS
     Route: 048
  2. DEPAS [Suspect]
     Dosage: 30 TABLETS
     Route: 048
  3. PAXIL [Suspect]
     Route: 048

REACTIONS (3)
  - ANXIETY DISORDER [None]
  - INSOMNIA [None]
  - INTENTIONAL OVERDOSE [None]
